FAERS Safety Report 11124292 (Version 2)
Quarter: 2015Q2

REPORT INFORMATION
  Report Type: Spontaneous
  Country: US (occurrence: None)
  Receive Date: 20150518
  Receipt Date: 20150522
  Transmission Date: 20150821
  Serious: Yes (Hospitalization)
  Sender: FDA-Public Use
  Company Number: INT_00758_2015

PATIENT
  Age: 56 Year
  Sex: Male

DRUGS (3)
  1. ETOPOSIDE. [Suspect]
     Active Substance: ETOPOSIDE
     Indication: GERM CELL CANCER
  2. CISPLATIN (HQ SPECIALTY) [Suspect]
     Active Substance: CISPLATIN
     Indication: GERM CELL CANCER
  3. BLEOMYCIN [Suspect]
     Active Substance: BLEOMYCIN SULFATE
     Indication: GERM CELL CANCER

REACTIONS (12)
  - Neutropenia [None]
  - Diarrhoea [None]
  - Febrile neutropenia [None]
  - Fungal test positive [None]
  - CSF pressure increased [None]
  - CSF protein increased [None]
  - Cellulitis [None]
  - Cryptococcus test positive [None]
  - Pericarditis [None]
  - Cerebral infarction [None]
  - Apnoea [None]
  - Toxic encephalopathy [None]
